FAERS Safety Report 11715019 (Version 1)
Quarter: 2015Q4

REPORT INFORMATION
  Report Type: Report from Study
  Country: JP (occurrence: JP)
  Receive Date: 20151109
  Receipt Date: 20151109
  Transmission Date: 20160304
  Serious: Yes (Death, Hospitalization)
  Sender: FDA-Public Use
  Company Number: JP-VIFOR (INTERNATIONAL) INC.-VIT-2015-03043

PATIENT
  Age: 86 Year
  Sex: Female
  Weight: 38.6 kg

DRUGS (41)
  1. MIRCERA [Suspect]
     Active Substance: METHOXY POLYETHYLENE GLYCOL-EPOETIN BETA
     Route: 058
     Dates: start: 20140218, end: 20140520
  2. LASIX [Concomitant]
     Active Substance: FUROSEMIDE
     Indication: NEPHROSCLEROSIS
     Route: 048
     Dates: start: 20130619
  3. LASIX [Concomitant]
     Active Substance: FUROSEMIDE
     Route: 048
     Dates: start: 20130620, end: 20140612
  4. MYSLEE [Concomitant]
     Active Substance: ZOLPIDEM TARTRATE
     Route: 048
  5. DORNER [Concomitant]
     Active Substance: BERAPROST SODIUM
     Route: 048
     Dates: start: 20140517, end: 20140524
  6. ADONA [Concomitant]
     Active Substance: CARBAZOCHROME SODIUM SULFONATE
     Indication: PROPHYLAXIS
     Route: 048
     Dates: start: 20140528, end: 20140603
  7. HUMAN RED BLOOD CELLS [Concomitant]
     Active Substance: HUMAN RED BLOOD CELL
     Indication: PROPHYLAXIS
     Route: 042
     Dates: start: 20140517, end: 20140517
  8. MIRCERA [Suspect]
     Active Substance: METHOXY POLYETHYLENE GLYCOL-EPOETIN BETA
     Indication: NEPHROGENIC ANAEMIA
     Route: 058
     Dates: start: 20130809, end: 20131001
  9. TAKEPRON [Concomitant]
     Active Substance: LANSOPRAZOLE
     Route: 048
     Dates: end: 20140610
  10. ADALAT [Concomitant]
     Active Substance: NIFEDIPINE
     Route: 048
     Dates: end: 20140610
  11. FOSAMAC [Concomitant]
     Active Substance: ALENDRONATE SODIUM
     Route: 048
     Dates: end: 20140604
  12. MOHRUS L [Concomitant]
     Active Substance: KETOPROFEN
     Route: 061
     Dates: start: 20131225, end: 20140129
  13. CRAVIT [Concomitant]
     Active Substance: LEVOFLOXACIN
     Indication: PROPHYLAXIS
     Route: 048
     Dates: start: 20140526, end: 20140606
  14. SOLDEM 1 [Concomitant]
     Active Substance: DEXTROSE\SODIUM CHLORIDE\SODIUM LACTATE
     Indication: PROPHYLAXIS
     Route: 042
     Dates: start: 20140517, end: 20140517
  15. MIRCERA [Suspect]
     Active Substance: METHOXY POLYETHYLENE GLYCOL-EPOETIN BETA
     Route: 058
     Dates: start: 20131105, end: 20140121
  16. FEBURIC [Concomitant]
     Active Substance: FEBUXOSTAT
     Route: 048
     Dates: start: 20130514, end: 20130614
  17. FERROMIA [Concomitant]
     Active Substance: FERROUS CITRATE
     Indication: NEPHROSCLEROSIS
     Route: 048
     Dates: start: 20130713, end: 20130810
  18. SEISHOKU [Concomitant]
     Active Substance: SODIUM CHLORIDE
     Indication: PROPHYLAXIS
     Route: 042
     Dates: start: 20131231, end: 20140114
  19. ADALAT [Concomitant]
     Active Substance: NIFEDIPINE
     Route: 048
     Dates: start: 20130822
  20. LOXONIN [Concomitant]
     Active Substance: LOXOPROFEN SODIUM
     Route: 061
     Dates: start: 20130712, end: 20131018
  21. ALOSITOL [Concomitant]
     Active Substance: ALLOPURINOL
     Route: 048
     Dates: start: 20140528, end: 20140610
  22. MEYLON [Concomitant]
     Active Substance: SODIUM BICARBONATE
     Indication: PROPHYLAXIS
     Route: 042
     Dates: start: 20150517, end: 20150517
  23. BAYASPIRIN [Concomitant]
     Active Substance: ASPIRIN
     Route: 048
     Dates: end: 20140610
  24. RINDERON VG [Concomitant]
     Active Substance: BETAMETHASONE VALERATE\GENTAMICIN SULFATE
     Route: 003
     Dates: start: 20130614, end: 20130903
  25. DORNER [Concomitant]
     Active Substance: BERAPROST SODIUM
     Route: 048
     Dates: start: 20131227, end: 20140103
  26. SAWACILLIN [Concomitant]
     Active Substance: AMOXICILLIN
     Indication: PROPHYLAXIS
     Route: 048
     Dates: start: 20140523, end: 20140527
  27. ROCEPHIN [Concomitant]
     Active Substance: CEFTRIAXONE SODIUM
     Route: 042
     Dates: start: 20140105, end: 20140114
  28. HEPARIN [Concomitant]
     Active Substance: HEPARIN SODIUM
     Indication: PROPHYLAXIS
     Route: 042
     Dates: start: 20140517, end: 20140517
  29. FESIN [Concomitant]
     Active Substance: IRON SUCROSE
     Indication: PROPHYLAXIS
     Route: 042
     Dates: start: 20140527, end: 20140601
  30. ALOSENN [Concomitant]
     Active Substance: SENNA LEAF
     Route: 048
     Dates: end: 20130820
  31. ALOSENN [Concomitant]
     Active Substance: SENNA LEAF
     Route: 048
     Dates: start: 20130619, end: 20130619
  32. ALFAROL [Concomitant]
     Active Substance: ALFACALCIDOL
     Route: 048
     Dates: end: 20140610
  33. KALIMATE [Concomitant]
     Active Substance: CALCIUM POLYSTYRENE SULFONATE
     Indication: PROPHYLAXIS
     Route: 048
     Dates: start: 20140517, end: 20140524
  34. CALONAL [Concomitant]
     Active Substance: ACETAMINOPHEN
     Route: 048
     Dates: start: 20140519, end: 20140523
  35. MIRCERA [Suspect]
     Active Substance: METHOXY POLYETHYLENE GLYCOL-EPOETIN BETA
     Route: 058
     Dates: start: 20130416, end: 20130712
  36. ADALAT [Concomitant]
     Active Substance: NIFEDIPINE
     Route: 048
     Dates: start: 20130821, end: 20140710
  37. D-SORBITOL [Concomitant]
     Route: 048
     Dates: start: 20140601, end: 20140610
  38. ROCEPHIN [Concomitant]
     Active Substance: CEFTRIAXONE SODIUM
     Indication: PROPHYLAXIS
     Route: 042
     Dates: start: 20131231, end: 20140104
  39. LASIX [Concomitant]
     Active Substance: FUROSEMIDE
     Route: 048
     Dates: start: 20130417, end: 20140710
  40. ADALAT [Concomitant]
     Active Substance: NIFEDIPINE
     Route: 048
     Dates: end: 20130821
  41. GLUCOSE [Concomitant]
     Active Substance: DEXTROSE
     Indication: PROPHYLAXIS
     Route: 042
     Dates: start: 20140527, end: 20140601

REACTIONS (10)
  - Gangrene [Not Recovered/Not Resolved]
  - General physical health deterioration [Fatal]
  - Gastrointestinal necrosis [Fatal]
  - Anaemia [Recovering/Resolving]
  - Urine output decreased [Unknown]
  - Abdominal pain [Unknown]
  - Gastrointestinal motility disorder [Unknown]
  - Vomiting [Unknown]
  - Renal failure [Fatal]
  - Anuria [Fatal]

NARRATIVE: CASE EVENT DATE: 20131225
